FAERS Safety Report 8602041 (Version 3)
Quarter: 2013Q3

REPORT INFORMATION
  Report Type: Spontaneous
  Country: US (occurrence: US)
  Receive Date: 20120607
  Receipt Date: 20130920
  Transmission Date: 20140515
  Serious: Yes (Disabling, Other)
  Sender: FDA-Public Use
  Company Number: US-ASTRAZENECA-2012SE36195

PATIENT
  Age: 25516 Day
  Sex: Male

DRUGS (13)
  1. NEXIUM [Suspect]
     Route: 048
     Dates: start: 200903, end: 2012
  2. MULTI VITAMIN [Concomitant]
  3. DETROL LA [Concomitant]
  4. CARTIA XT [Concomitant]
  5. BENZONATATE [Concomitant]
  6. GENERLAC [Concomitant]
  7. TUMS [Concomitant]
  8. ALKA SELTZER [Concomitant]
  9. MILK OF MAGNESIA [Concomitant]
  10. GAVISCON [Concomitant]
  11. PEPTO BISMOL [Concomitant]
  12. ROLAIDS [Concomitant]
  13. MYLANTA [Concomitant]

REACTIONS (8)
  - Road traffic accident [Unknown]
  - Limb crushing injury [Unknown]
  - Joint dislocation [Unknown]
  - Osteoporosis [Unknown]
  - Multiple fractures [Unknown]
  - Limb injury [Unknown]
  - Neck pain [Unknown]
  - Osteoarthritis [Unknown]
